FAERS Safety Report 4666790-8 (Version None)
Quarter: 2005Q2

REPORT INFORMATION
  Report Type: 
  Country: None (occurrence: None)
  Receive Date: 20050519
  Receipt Date: 20050517
  Transmission Date: 20051028
  Serious: Yes (Life-Threatening)
  Sender: FDA-Public Use
  Company Number: US-MERCK-0505USA02050

PATIENT
  Age: 83 Year
  Sex: Female

DRUGS (4)
  1. FOSAMAX [Suspect]
     Indication: OSTEOPOROSIS
     Route: 048
     Dates: start: 20020101
  2. CYTOMEL [Concomitant]
     Route: 065
  3. NYSTATIN [Concomitant]
     Route: 065
  4. CLOTRIMAZOLE [Concomitant]
     Route: 065

REACTIONS (1)
  - PHARYNGEAL HYPERTROPHY [None]
